FAERS Safety Report 20700060 (Version 2)
Quarter: 2022Q2

REPORT INFORMATION
  Report Type: Spontaneous
  Country: US (occurrence: None)
  Receive Date: 20220412
  Receipt Date: 20220612
  Transmission Date: 20220721
  Serious: No
  Sender: FDA-Public Use
  Company Number: 2022A114183

PATIENT
  Age: 19261 Day
  Sex: Female
  Weight: 81.6 kg

DRUGS (7)
  1. FASENRA [Suspect]
     Active Substance: BENRALIZUMAB
     Indication: Lung disorder
     Route: 058
     Dates: start: 20220122
  2. FASENRA [Suspect]
     Active Substance: BENRALIZUMAB
     Indication: Asthma
     Route: 058
     Dates: start: 20220122
  3. FASENRA [Suspect]
     Active Substance: BENRALIZUMAB
     Indication: Lung disorder
     Route: 058
     Dates: start: 20220222
  4. FASENRA [Suspect]
     Active Substance: BENRALIZUMAB
     Indication: Asthma
     Route: 058
     Dates: start: 20220222
  5. SYMBICORT [Suspect]
     Active Substance: BUDESONIDE\FORMOTEROL FUMARATE DIHYDRATE
     Indication: Lung disorder
     Dosage: 160/4.5 MCG, 2 INHALATIONS, TWICE A DAY
     Route: 055
     Dates: start: 202110
  6. SYMBICORT [Suspect]
     Active Substance: BUDESONIDE\FORMOTEROL FUMARATE DIHYDRATE
     Indication: Chronic obstructive pulmonary disease
     Dosage: 160/4.5 MCG, 2 INHALATIONS, TWICE A DAY
     Route: 055
     Dates: start: 202110
  7. SPIRIVA [Concomitant]
     Active Substance: TIOTROPIUM BROMIDE MONOHYDRATE
     Route: 065

REACTIONS (9)
  - Migraine [Not Recovered/Not Resolved]
  - Candida infection [Recovered/Resolved]
  - Dyspnoea [Not Recovered/Not Resolved]
  - Supraventricular tachycardia [Unknown]
  - Cardiac flutter [Unknown]
  - Heart rate increased [Not Recovered/Not Resolved]
  - Cardiac disorder [Unknown]
  - Stomatitis [Recovered/Resolved]
  - Headache [Not Recovered/Not Resolved]

NARRATIVE: CASE EVENT DATE: 20220122
